FAERS Safety Report 19846936 (Version 6)
Quarter: 2022Q4

REPORT INFORMATION
  Report Type: Report from Study
  Country: CO (occurrence: CO)
  Receive Date: 20210917
  Receipt Date: 20221204
  Transmission Date: 20230113
  Serious: Yes (Hospitalization, Other)
  Sender: FDA-Public Use
  Company Number: CO-BIOGEN-2021BI01045248

PATIENT
  Sex: Female
  Weight: 69 kg

DRUGS (5)
  1. AVONEX [Suspect]
     Active Substance: INTERFERON BETA-1A
     Indication: Multiple sclerosis
     Route: 050
     Dates: start: 2010
  2. AVONEX [Suspect]
     Active Substance: INTERFERON BETA-1A
     Route: 050
     Dates: start: 2012
  3. AVONEX [Suspect]
     Active Substance: INTERFERON BETA-1A
     Route: 050
     Dates: start: 201507
  4. AVONEX [Suspect]
     Active Substance: INTERFERON BETA-1A
  5. AMANTADINE [Concomitant]
     Active Substance: AMANTADINE
     Indication: Pain
     Route: 050
     Dates: start: 2007

REACTIONS (19)
  - Suture related complication [Not Recovered/Not Resolved]
  - Type 2 diabetes mellitus [Not Recovered/Not Resolved]
  - Hypokinesia [Not Recovered/Not Resolved]
  - Inflammation [Not Recovered/Not Resolved]
  - Hypoaesthesia [Not Recovered/Not Resolved]
  - Cholelithiasis [Recovered/Resolved]
  - Intervertebral disc protrusion [Recovered/Resolved]
  - Pain [Not Recovered/Not Resolved]
  - Headache [Not Recovered/Not Resolved]
  - Dizziness [Not Recovered/Not Resolved]
  - Drug ineffective [Unknown]
  - Blood glucose increased [Unknown]
  - Dysphonia [Not Recovered/Not Resolved]
  - Syncope [Recovered/Resolved]
  - Arthralgia [Unknown]
  - Asthenia [Unknown]
  - Vomiting [Not Recovered/Not Resolved]
  - Muscular weakness [Not Recovered/Not Resolved]
  - Fatigue [Not Recovered/Not Resolved]

NARRATIVE: CASE EVENT DATE: 20140101
